FAERS Safety Report 7991312-3 (Version None)
Quarter: 2011Q4

REPORT INFORMATION
  Report Type: 
  Country: None (occurrence: None)
  Receive Date: 20111219
  Receipt Date: 20111213
  Transmission Date: 20120403
  Serious: Yes (Other)
  Sender: FDA-Public Use
  Company Number: CA-PFIZER INC-2011269606

PATIENT
  Age: 55 Year
  Sex: Female

DRUGS (14)
  1. ESTROGEL [Concomitant]
     Dosage: 2 PUMPS ONCE DAILY
  2. ASPIRIN [Concomitant]
     Dosage: 80 MG, 1X/DAY
  3. CALCIUM WITH VITAMIN D [Concomitant]
     Dosage: 500/400
  4. LYRICA [Suspect]
     Dosage: 100 MG, 2X/DAY
     Route: 048
     Dates: start: 20100101, end: 20111025
  5. LIPITOR [Concomitant]
     Dosage: 10 MG, 1X/DAY AT BEDTIME
  6. VITAMIN B COMPLEX CAP [Concomitant]
     Dosage: 400 IU, 2X/DAY
  7. IMOVANE [Concomitant]
     Dosage: 7.5 MG AT BEDTIME, AS NEEDED
     Dates: start: 20110216
  8. LYRICA [Suspect]
     Dosage: 100 MG IN THE MORNING AND 150MG AT BEDTIME
     Route: 048
     Dates: start: 20111026
  9. GLUCOPHAGE [Concomitant]
     Dosage: 850 MG, 2X/DAY
  10. LYRICA [Suspect]
     Indication: PAIN
     Dosage: 25 MG, 2X/DAY
     Route: 048
     Dates: start: 20100501, end: 20100101
  11. LYRICA [Suspect]
     Dosage: 75 MG, 2X/DAY
     Route: 048
     Dates: start: 20100101, end: 20100101
  12. JANUVIA [Concomitant]
     Dosage: 100 MG, 1X/DAY
     Dates: start: 20100302
  13. LYRICA [Suspect]
     Dosage: 50 MG, 2X/DAY
     Route: 048
     Dates: start: 20100101, end: 20100101
  14. PROMETRIUM [Concomitant]
     Dosage: 100 MG, 1X/DAY AT BEDTIME

REACTIONS (1)
  - POSTMENOPAUSAL HAEMORRHAGE [None]
